FAERS Safety Report 24761474 (Version 1)
Quarter: 2024Q4

REPORT INFORMATION
  Report Type: Spontaneous
  Country: US (occurrence: None)
  Receive Date: 20241220
  Receipt Date: 20241220
  Transmission Date: 20250114
  Serious: Yes (Life-Threatening, Hospitalization, Other)
  Sender: Public
  Company Number: None

PATIENT
  Age: 55 Year
  Sex: Female
  Weight: 70.65 kg

DRUGS (1)
  1. SEMAGLUTIDE [Suspect]
     Active Substance: SEMAGLUTIDE
     Dosage: 8 MG/ML WEEKLY OTHER
     Route: 050
     Dates: start: 20241217, end: 20241217

REACTIONS (3)
  - Vomiting [None]
  - Product label issue [None]
  - Product communication issue [None]

NARRATIVE: CASE EVENT DATE: 20241217
